FAERS Safety Report 15545865 (Version 1)
Quarter: 2018Q4

REPORT INFORMATION
  Report Type: Spontaneous
  Country: US (occurrence: US)
  Receive Date: 20181023
  Receipt Date: 20181023
  Transmission Date: 20190205
  Serious: Yes (Other)
  Sender: FDA-Public Use
  Company Number: None

PATIENT
  Age: 74 Year
  Sex: Female
  Weight: 94.5 kg

DRUGS (13)
  1. AMBIEN [Concomitant]
     Active Substance: ZOLPIDEM TARTRATE
  2. AMLODIPEN [Concomitant]
  3. GABAPENTIN. [Concomitant]
     Active Substance: GABAPENTIN
  4. HYDROCHLOROTHIAZIDE. [Concomitant]
     Active Substance: HYDROCHLOROTHIAZIDE
  5. IMATINIB. [Suspect]
     Active Substance: IMATINIB MESYLATE
     Indication: GASTROINTESTINAL STROMAL CANCER
     Route: 048
     Dates: start: 20180806
  6. METFORMIN [Concomitant]
     Active Substance: METFORMIN HYDROCHLORIDE
  7. DOCUSATE [Concomitant]
     Active Substance: DOCUSATE
  8. IMATIIB [Concomitant]
  9. RANITIDINE. [Concomitant]
     Active Substance: RANITIDINE
  10. SENNA [Concomitant]
     Active Substance: SENNA LEAF\SENNOSIDES\SENNOSIDES A AND B
  11. ASPIRIN. [Concomitant]
     Active Substance: ASPIRIN
  12. FERROUS SULFATE. [Concomitant]
     Active Substance: FERROUS SULFATE
  13. MELOXICAM. [Concomitant]
     Active Substance: MELOXICAM

REACTIONS (1)
  - Blood count abnormal [None]

NARRATIVE: CASE EVENT DATE: 20181023
